FAERS Safety Report 7830113-3 (Version None)
Quarter: 2011Q4

REPORT INFORMATION
  Report Type: 
  Country: None (occurrence: None)
  Receive Date: 20111021
  Receipt Date: 20111012
  Transmission Date: 20120403
  Serious: Yes (Other)
  Sender: FDA-Public Use
  Company Number: US-JNJFOC-20111007198

PATIENT
  Sex: Female
  Weight: 57.15 kg

DRUGS (11)
  1. SYNTHROID [Suspect]
     Route: 048
     Dates: start: 20090101
  2. ATIVAN [Concomitant]
     Indication: ANXIETY
     Route: 048
  3. SYNTHROID [Suspect]
     Indication: HYPOTHYROIDISM
     Route: 048
  4. ADDERALL 5 [Concomitant]
     Indication: DISTURBANCE IN ATTENTION
     Route: 048
  5. NEXIUM [Concomitant]
     Indication: DYSPEPSIA
     Route: 048
  6. SYNTHROID [Suspect]
     Route: 048
     Dates: start: 20110101
  7. SYNTHROID [Suspect]
     Route: 048
     Dates: end: 20110101
  8. FENTANYL-100 [Suspect]
     Indication: COMPLEX REGIONAL PAIN SYNDROME
     Dosage: NDC#0781-7243-55
     Route: 062
     Dates: start: 20090101
  9. OXYCONTIN [Concomitant]
     Indication: PAIN
     Route: 048
  10. ATIVAN [Concomitant]
     Indication: PANIC DISORDER
     Route: 048
  11. AN UNKNOWN MEDICATION [Concomitant]
     Indication: ANAEMIA
     Route: 048

REACTIONS (4)
  - WRONG TECHNIQUE IN DRUG USAGE PROCESS [None]
  - ABNORMAL LOSS OF WEIGHT [None]
  - THERAPEUTIC RESPONSE DECREASED [None]
  - PRODUCT QUALITY ISSUE [None]
